FAERS Safety Report 4380006-1 (Version None)
Quarter: 2004Q2

REPORT INFORMATION
  Report Type: 
  Country: None (occurrence: None)
  Receive Date: 20040614
  Receipt Date: 20040211
  Transmission Date: 20050107
  Serious: No
  Sender: FDA-Public Use
  Company Number: ALMO2004006

PATIENT
  Sex: Female

DRUGS (1)
  1. AXERT [Suspect]

REACTIONS (3)
  - CHEILITIS [None]
  - FACE OEDEMA [None]
  - HYPERSENSITIVITY [None]
